FAERS Safety Report 11013800 (Version 2)
Quarter: 2015Q2

REPORT INFORMATION
  Report Type: Spontaneous
  Country: US (occurrence: US)
  Receive Date: 20150412
  Receipt Date: 20150526
  Transmission Date: 20150821
  Serious: No
  Sender: FDA-Public Use
  Company Number: US-JNJFOC-20150206103

PATIENT
  Age: 42 Year
  Sex: Male

DRUGS (1)
  1. EDURANT [Suspect]
     Active Substance: RILPIVIRINE HYDROCHLORIDE
     Indication: HIV INFECTION
     Route: 048

REACTIONS (3)
  - Product packaging quantity issue [Unknown]
  - Incorrect product storage [Not Recovered/Not Resolved]
  - Wrong technique in drug usage process [Not Recovered/Not Resolved]

NARRATIVE: CASE EVENT DATE: 20150205
